FAERS Safety Report 8578013-8 (Version None)
Quarter: 2012Q3

REPORT INFORMATION
  Report Type: 
  Country: None (occurrence: None)
  Receive Date: 20120726
  Receipt Date: 20120711
  Transmission Date: 20120928
  Serious: Yes (Other)
  Sender: FDA-Public Use
  Company Number: US-1193150

PATIENT
  Age: 84 Year
  Sex: Female
  Weight: 40.8237 kg

DRUGS (3)
  1. TRAVATAN Z [Suspect]
     Indication: GLAUCOMA
     Dosage: (1 GTT QD QU OPHTHALMIC)
     Route: 047
     Dates: start: 20120625, end: 20120702
  2. NIFEDIPINE [Concomitant]
  3. TIMOLOL MATEATE [Concomitant]

REACTIONS (3)
  - DIZZINESS [None]
  - FALL [None]
  - VISION BLURRED [None]
